FAERS Safety Report 8240672-7 (Version None)
Quarter: 2012Q1

REPORT INFORMATION
  Report Type: 
  Country: None (occurrence: None)
  Receive Date: 20120328
  Receipt Date: 20120322
  Transmission Date: 20120608
  Serious: Yes (Other)
  Sender: FDA-Public Use
  Company Number: US-PFIZER INC-2012014717

PATIENT
  Sex: Male
  Weight: 129 kg

DRUGS (6)
  1. LISINOPRIL [Concomitant]
     Dosage: UNK
  2. METFORMIN [Concomitant]
     Dosage: UNK
  3. ATENOLOL [Concomitant]
     Dosage: UNK
  4. LIPITOR [Suspect]
     Indication: BLOOD CHOLESTEROL INCREASED
     Dosage: 80 MG, ONCE A DAY
     Route: 048
  5. GLIMEPIRIDE [Concomitant]
     Dosage: UNK
  6. LIPITOR [Suspect]
     Dosage: UNK
     Route: 048
     Dates: end: 20090101

REACTIONS (3)
  - HYPERTENSION [None]
  - BLOOD CHOLESTEROL INCREASED [None]
  - ANGIOPATHY [None]
